FAERS Safety Report 9782119 (Version 3)
Quarter: 2014Q2

REPORT INFORMATION
  Report Type: Report from Study
  Country: AU (occurrence: AU)
  Receive Date: 20131226
  Receipt Date: 20140422
  Transmission Date: 20141212
  Serious: Yes (Other)
  Sender: FDA-Public Use
  Company Number: AU-ROCHE-1322517

PATIENT
  Age: 64 Year
  Sex: Male

DRUGS (4)
  1. ACTEMRA [Suspect]
     Indication: RHEUMATOID ARTHRITIS
     Route: 042
     Dates: start: 20120301
  2. METHOTREXATE [Concomitant]
     Indication: RHEUMATOID ARTHRITIS
     Dosage: ON TUESDAYS
     Route: 048
  3. FOLIC ACID [Concomitant]
     Dosage: ALTERNATE DAYS
     Route: 048
  4. SERETIDE [Concomitant]
     Indication: WHEEZING
     Dosage: DOSE: 250/25 MCG
     Route: 055
     Dates: start: 201208

REACTIONS (6)
  - Haemoptysis [Unknown]
  - Chest pain [Recovering/Resolving]
  - Dyspnoea [Unknown]
  - Cough [Recovering/Resolving]
  - Lower respiratory tract infection [Unknown]
  - Lower respiratory tract infection [Recovered/Resolved]
